FAERS Safety Report 18936710 (Version 1)
Quarter: 2021Q1

REPORT INFORMATION
  Report Type: Spontaneous
  Country: DZ (occurrence: DZ)
  Receive Date: 20210224
  Receipt Date: 20210224
  Transmission Date: 20210420
  Serious: Yes (Hospitalization)
  Sender: FDA-Public Use
  Company Number: DZ-BAYER-2021-069232

PATIENT
  Age: 65 Year
  Sex: Female

DRUGS (1)
  1. STIVARGA [Suspect]
     Active Substance: REGORAFENIB
     Indication: COLON CANCER METASTATIC
     Dosage: DAILY DOSE 80 MG
     Route: 048

REACTIONS (10)
  - Jaundice [None]
  - Cell death [None]
  - Blood albumin abnormal [None]
  - Haemoglobin decreased [None]
  - Aspartate aminotransferase increased [None]
  - Blood bilirubin increased [None]
  - Dyspnoea exertional [None]
  - Alanine aminotransferase increased [None]
  - Protein total abnormal [None]
  - Haematemesis [None]

NARRATIVE: CASE EVENT DATE: 20210210
